FAERS Safety Report 9670195 (Version 2)
Quarter: 2013Q4

REPORT INFORMATION
  Report Type: Spontaneous
  Country: US (occurrence: None)
  Receive Date: 20131104
  Receipt Date: 20131112
  Transmission Date: 20140711
  Serious: Yes (Other)
  Sender: FDA-Public Use
  Company Number: 20130612

PATIENT
  Sex: Female

DRUGS (12)
  1. LIDOCAINE HCL INJECTION, USP (0625-25) 10 MG/ML [Suspect]
     Indication: PREOPERATIVE CARE
     Dosage: 11.5 MG/HR,IV
  2. LIDOCAINE HCL INJECTION, USP (0625-25) 10 MG/ML [Suspect]
     Indication: ANALGESIC THERAPY
     Dosage: 11.5 MG/HR,IV
  3. KETAMINE [Suspect]
     Indication: PREOPERATIVE CARE
     Dosage: 6 MG/HR IV.
  4. KETAMINE [Suspect]
     Indication: ANALGESIC THERAPY
     Dosage: 6 MG/HR IV.
  5. MAGNESIUM SULFATE [Suspect]
     Indication: PRODUCT USED FOR UNKNOWN INDICATION
  6. ASPIRIN [Concomitant]
  7. HETASTARCH [Concomitant]
  8. FUROSEMIDE [Concomitant]
  9. NIFEDIPINE [Concomitant]
  10. ATENOLOL [Concomitant]
  11. LINAGLIPTIN [Concomitant]
  12. VALSARTAN [Concomitant]

REACTIONS (3)
  - Hepatic haemorrhage [None]
  - Platelet aggregation inhibition [None]
  - Haematocrit decreased [None]
